FAERS Safety Report 11235244 (Version 1)
Quarter: 2015Q3

REPORT INFORMATION
  Report Type: Spontaneous
  Country: NL (occurrence: NL)
  Receive Date: 20150702
  Receipt Date: 20150702
  Transmission Date: 20151125
  Serious: Yes (Other)
  Sender: FDA-Public Use
  Company Number: NL-TEVA-574059ISR

PATIENT
  Sex: Male
  Weight: 25 kg

DRUGS (4)
  1. BUDESONIDE VERNEVELD [Suspect]
     Active Substance: BUDESONIDE
     Indication: ASTHMA
     Dosage: 2 DOSAGE FORMS DAILY;
     Route: 055
     Dates: start: 20050922
  2. IPRATROPIUM/SALBUTAMOL [Concomitant]
     Indication: ASTHMA
     Dosage: 3 DOSAGE FORMS DAILY;
     Route: 055
     Dates: start: 20140505
  3. QVAR [Suspect]
     Active Substance: BECLOMETHASONE DIPROPIONATE
     Indication: ASTHMA
     Dosage: 2 DOSAGE FORMS DAILY;
     Route: 055
     Dates: start: 20140502
  4. SALBUTAMOL [Concomitant]
     Active Substance: ALBUTEROL
     Indication: ASTHMA
     Dosage: 4 DOSAGE FORMS DAILY; MAXIMUM OF 4 DOSAGE FORMS PER DAY
     Route: 055
     Dates: start: 20141224

REACTIONS (2)
  - Psychomotor hyperactivity [Not Recovered/Not Resolved]
  - Growth retardation [Not Recovered/Not Resolved]
